FAERS Safety Report 15613418 (Version 1)
Quarter: 2018Q4

REPORT INFORMATION
  Report Type: Spontaneous
  Country: IT (occurrence: IT)
  Receive Date: 20181113
  Receipt Date: 20181113
  Transmission Date: 20190205
  Serious: Yes (Hospitalization)
  Sender: FDA-Public Use
  Company Number: IT-PFIZER INC-2018462150

PATIENT
  Age: 68 Year
  Sex: Female

DRUGS (2)
  1. HALCION [Suspect]
     Active Substance: TRIAZOLAM
     Indication: PSYCHOTIC DISORDER
     Dosage: 1.25 MG, 1X/DAY
     Route: 048
     Dates: start: 20171222, end: 20171222
  2. SEROQUEL [Suspect]
     Active Substance: QUETIAPINE FUMARATE
     Indication: PSYCHOTIC DISORDER
     Dosage: 300 MG, 1X/DAY
     Route: 048
     Dates: start: 20171222, end: 20171222

REACTIONS (1)
  - Toxicity to various agents [Recovering/Resolving]

NARRATIVE: CASE EVENT DATE: 20171222
